FAERS Safety Report 21789951 (Version 1)
Quarter: 2022Q4

REPORT INFORMATION
  Report Type: Spontaneous
  Country: US (occurrence: None)
  Receive Date: 20221227
  Receipt Date: 20221227
  Transmission Date: 20230112
  Serious: No
  Sender: FDA-Public Use
  Company Number: None

PATIENT

DRUGS (1)
  1. OSCAL [Suspect]
     Active Substance: CALCIUM CARBONATE

REACTIONS (3)
  - Hypercalcaemia [None]
  - Product label confusion [None]
  - Incorrect dose administered [None]
